FAERS Safety Report 6346932-9 (Version None)
Quarter: 2009Q3

REPORT INFORMATION
  Report Type: 
  Country: None (occurrence: None)
  Receive Date: 20090910
  Receipt Date: 20090904
  Transmission Date: 20100115
  Serious: Yes (Other)
  Sender: FDA-Public Use
  Company Number: US-JNJFOC-20090902484

PATIENT
  Sex: Male

DRUGS (1)
  1. HALOPERIDOL DECONOATE [Suspect]
     Indication: DRUG USE FOR UNKNOWN INDICATION

REACTIONS (2)
  - DYSTONIA [None]
  - SWOLLEN TONGUE [None]
